FAERS Safety Report 9220052 (Version 1)
Quarter: 2013Q2

REPORT INFORMATION
  Report Type: Spontaneous
  Country: US (occurrence: US)
  Receive Date: 20130409
  Receipt Date: 20130409
  Transmission Date: 20140414
  Serious: No
  Sender: FDA-Public Use
  Company Number: US-TEVA-395096USA

PATIENT
  Sex: 0

DRUGS (1)
  1. QVAR [Suspect]
     Dosage: UG/L
     Route: 055

REACTIONS (3)
  - Lung disorder [Unknown]
  - Chest pain [Unknown]
  - Cough [Unknown]
